FAERS Safety Report 13982136 (Version 2)
Quarter: 2017Q3

REPORT INFORMATION
  Report Type: Report from Study
  Country: ES (occurrence: ES)
  Receive Date: 20170918
  Receipt Date: 20170922
  Transmission Date: 20171128
  Serious: Yes (Death, Hospitalization)
  Sender: FDA-Public Use
  Company Number: ES-ROCHE-1990116

PATIENT
  Age: 36 Year
  Sex: Male
  Weight: 58 kg

DRUGS (8)
  1. ATEZOLIZUMAB. [Suspect]
     Active Substance: ATEZOLIZUMAB
     Indication: BLADDER TRANSITIONAL CELL CARCINOMA
     Dosage: RECEIVED ONLY 1 CYCLE
     Route: 042
     Dates: start: 20170816
  2. PARACETAMOL [Concomitant]
     Active Substance: ACETAMINOPHEN
     Indication: PAIN
     Route: 048
     Dates: start: 20170220
  3. ABSTRAL [Concomitant]
     Active Substance: FENTANYL CITRATE
     Indication: PAIN
     Route: 048
     Dates: start: 20170308
  4. METOCLOPRAMIDE. [Concomitant]
     Active Substance: METOCLOPRAMIDE
     Indication: VOMITING
  5. MST CONTINUS [Concomitant]
     Active Substance: MORPHINE SULFATE
     Indication: PAIN
     Route: 048
     Dates: start: 20170308
  6. LORAZEPAM. [Concomitant]
     Active Substance: LORAZEPAM
     Indication: INSOMNIA
     Route: 048
     Dates: start: 20170308
  7. OMEPRAZOLE. [Concomitant]
     Active Substance: OMEPRAZOLE
     Route: 048
     Dates: start: 20170308
  8. METOCLOPRAMIDE. [Concomitant]
     Active Substance: METOCLOPRAMIDE
     Indication: NAUSEA
     Dosage: IF NEEDED
     Route: 048
     Dates: start: 20170308

REACTIONS (2)
  - Pyrexia [Unknown]
  - Encephalitis [Fatal]

NARRATIVE: CASE EVENT DATE: 20170828
